FAERS Safety Report 5987881-5 (Version None)
Quarter: 2008Q4

REPORT INFORMATION
  Report Type: 
  Country: None (occurrence: None)
  Receive Date: 20081209
  Receipt Date: 20080618
  Transmission Date: 20090506
  Serious: No
  Sender: FDA-Public Use
  Company Number: US-TYCO HEALTHCARE/MALLINCKRODT-T200801047

PATIENT

DRUGS (2)
  1. ULTRA-TECHNEKOW [Suspect]
     Indication: BONE SCAN
     Dosage: 25 MCI, SINGLE
     Route: 042
  2. TECHNESCAN MDP [Suspect]
     Indication: BONE SCAN
     Dosage: UNK, SINGLE
     Route: 042

REACTIONS (1)
  - CELLULITIS [None]
